FAERS Safety Report 23228688 (Version 1)
Quarter: 2023Q4

REPORT INFORMATION
  Report Type: Spontaneous
  Country: FR (occurrence: FR)
  Receive Date: 20231126
  Receipt Date: 20231126
  Transmission Date: 20240110
  Serious: Yes (Other)
  Sender: FDA-Public Use
  Company Number: FR-JNJFOC-20231158417

PATIENT

DRUGS (1)
  1. ERDAFITINIB [Suspect]
     Active Substance: ERDAFITINIB
     Indication: Product used for unknown indication
     Dosage: TREATMENT SCHEME OF 15 DAYS AT 6 MG A DAY
     Route: 065
     Dates: end: 202311

REACTIONS (2)
  - Pyelonephritis [Unknown]
  - Skin toxicity [Unknown]
